FAERS Safety Report 14256646 (Version 35)
Quarter: 2021Q3

REPORT INFORMATION
  Report Type: Spontaneous
  Country: ES (occurrence: ES)
  Receive Date: 20171206
  Receipt Date: 20210916
  Transmission Date: 20211014
  Serious: Yes (Hospitalization, Other)
  Sender: FDA-Public Use
  Company Number: ES-PFIZER INC-2017521276

PATIENT
  Age: 87 Year
  Sex: Male
  Weight: 87 kg

DRUGS (79)
  1. STELARA [Suspect]
     Active Substance: USTEKINUMAB
     Dosage: 25 MG, QD, CAPSULE
     Dates: start: 20170728, end: 20170728
  2. PARACETAMOL [Concomitant]
     Active Substance: ACETAMINOPHEN
     Dosage: 650 MG, 2X/DAY (EACH 12H)
  3. DIPROGENTA [Concomitant]
     Active Substance: BETAMETHASONE DIPROPIONATE\GENTAMICIN SULFATE
     Dosage: 1 DF, 2X/DAY
     Route: 061
  4. EUCERIN [SALICYLIC ACID] [Concomitant]
     Dosage: UNK
  5. EUCERIN [DL? LACTIC ACID] [Concomitant]
     Dosage: UNK
  6. ENALAPRIL AGEN [Concomitant]
     Dosage: 5 MG, QD
  7. STELARA [Suspect]
     Active Substance: USTEKINUMAB
     Indication: ERYTHRODERMIC PSORIASIS
     Dosage: 50 MG, CAPSULE
     Dates: start: 20170728
  8. LISALGIL [Suspect]
     Active Substance: METAMIZOLE SODIUM
     Dosage: 1 DF, 3X/DAY (EVERY 8 HOURS)  (1200 MG QD)
     Route: 042
     Dates: start: 201708
  9. JUNIPER OIL [Concomitant]
     Active Substance: HERBALS\JUNIPERUS COMMUNIS WHOLE
     Dosage: 1 UNK, 1X/DAY(BATHROOMS WITH JUNIPER OIL QD FOR 20 MINUTES, 1X/DAY)
  10. SIMVASTATIN. [Concomitant]
     Active Substance: SIMVASTATIN
     Dosage: 20 MG,QD
     Route: 065
  11. LORATADINE. [Concomitant]
     Active Substance: LORATADINE
     Dosage: 10 MG,QD
     Route: 048
     Dates: start: 20170726
  12. DIPROGENTA [Concomitant]
     Active Substance: BETAMETHASONE DIPROPIONATE\GENTAMICIN SULFATE
     Dosage: 2 DF, 2X/DAY  (EVERY 12 HOURS)
     Route: 061
  13. DIPROGENTA [Concomitant]
     Active Substance: BETAMETHASONE DIPROPIONATE\GENTAMICIN SULFATE
     Dosage: FREQ:12 H;UNK UNK,Q12H
     Route: 061
  14. SALMETEROL [Concomitant]
     Active Substance: SALMETEROL
     Dosage: FREQ:12 H;UNK UNK,Q12H
     Route: 055
  15. ALDACTONE [Concomitant]
     Active Substance: SPIRONOLACTONE
     Dosage: 25 MG, 1X/DAY
     Dates: end: 20170802
  16. EUCERIN [SALICYLIC ACID] [Concomitant]
     Indication: PRODUCT USED FOR UNKNOWN INDICATION
     Dosage: UNK
  17. STELARA [Suspect]
     Active Substance: USTEKINUMAB
     Dosage: 45 MG, 2X/DAY
     Route: 058
     Dates: start: 20170803, end: 20170803
  18. LISALGIL [Suspect]
     Active Substance: METAMIZOLE SODIUM
     Dosage: FREQ:8 H;1 DF, Q8H (1200 MG QD)
     Route: 042
     Dates: start: 201708
  19. MONOLITUM [Concomitant]
     Active Substance: LANSOPRAZOLE
     Dosage: 30 MG,QD
     Dates: start: 20170401
  20. JUNIPER OIL [Concomitant]
     Active Substance: HERBALS\JUNIPERUS COMMUNIS WHOLE
     Dosage: 1 DF,QD
     Route: 065
  21. LORATADINE. [Concomitant]
     Active Substance: LORATADINE
     Dosage: 10 MG,QD
     Route: 048
     Dates: start: 20170726
  22. BILAXTEN [Concomitant]
     Active Substance: BILASTINE
     Dosage: 40 MG, QD
     Route: 048
     Dates: start: 20170726, end: 20170726
  23. AUXINA A+E [Concomitant]
     Active Substance: RETINOL\TOCOPHEROL
     Dosage: 1 DF, 1X/DAY
     Route: 048
     Dates: start: 20170401, end: 20170726
  24. SALMETEROL [Concomitant]
     Active Substance: SALMETEROL
     Dosage: 1 DF, 2X/DAY (1 INHALATION, 2X/DAY (12 HOURS)
     Route: 055
  25. SIMVASTATIN. [Concomitant]
     Active Substance: SIMVASTATIN
     Dosage: 20 MG, 1X/DAY (24 HOURS)
  26. BRETARIS GENUAIR [Concomitant]
     Active Substance: ACLIDINIUM BROMIDE
     Dosage: 1 DF, 1X/DAY (1 INHALATION, 1X/DAY)
     Route: 055
  27. BRETARIS GENUAIR [Concomitant]
     Active Substance: ACLIDINIUM BROMIDE
     Dosage: UNK, 2X/DAY (EVERY 12 HOURS)
     Route: 055
  28. PARACETAMOL [Concomitant]
     Active Substance: ACETAMINOPHEN
     Dosage: FREQ:12 H;650 MG,Q12H
  29. DIPROGENTA [Concomitant]
     Active Substance: BETAMETHASONE DIPROPIONATE\GENTAMICIN SULFATE
     Dosage: 1 DF, 2X/DAY  (EVERY 12 HOURS)
     Route: 061
  30. DIPROGENTA [Concomitant]
     Active Substance: BETAMETHASONE DIPROPIONATE\GENTAMICIN SULFATE
     Dosage: FREQ:12 H;UNK UNK,Q12H
     Route: 061
  31. ZYLORIC [Concomitant]
     Active Substance: ALLOPURINOL
     Dosage: 100 MG, 1X/DAY
  32. EUCERIN [DL? LACTIC ACID] [Concomitant]
     Dosage: 1 DF, 1X/DAY
  33. CALCIPOTRIOL/BETAMETHASONE SANDOZ [Concomitant]
     Dosage: FREQ:12 H;2 DF
  34. ENALAPRIL AGEN [Concomitant]
     Indication: PRODUCT USED FOR UNKNOWN INDICATION
     Dosage: 5 MG, 1X/DAY
  35. ACICLOVIR [Suspect]
     Active Substance: ACYCLOVIR
     Dosage: 45 MG, QD
     Route: 042
     Dates: start: 20170810
  36. ALLOPURINOL. [Suspect]
     Active Substance: ALLOPURINOL
     Dosage: 100 MG, 1X/DAY
  37. BRETARIS GENUAIR [Concomitant]
     Active Substance: ACLIDINIUM BROMIDE
     Dosage: FREQ:12 H;1 DF,Q12H
     Route: 055
  38. BRETARIS GENUAIR [Concomitant]
     Active Substance: ACLIDINIUM BROMIDE
     Dosage: FREQ:12 H;1 DF, Q12H
  39. EUCERIN [Concomitant]
     Active Substance: ENSULIZOLE\EUCERIN\OCTINOXATE\OCTISALATE\TITANIUM DIOXIDE\ZINC OXIDE
     Dosage: UNK UNK, 2X/DAY
  40. ZYLORIC [Concomitant]
     Active Substance: ALLOPURINOL
     Dosage: 100 MG,QD
  41. AZITHROMYCIN ANHYDROUS. [Concomitant]
     Active Substance: AZITHROMYCIN ANHYDROUS
     Dosage: UNK
     Dates: start: 20170812, end: 20170812
  42. SPIRONOLACTONE. [Concomitant]
     Active Substance: SPIRONOLACTONE
     Dosage: 25 MG,QD
     Dates: start: 20170802
  43. CALCIPOTRIOL/BETAMETHASONE SANDOZ [Concomitant]
     Dosage: 4 DF, QD
  44. ACICLOVIR [Suspect]
     Active Substance: ACYCLOVIR
     Dosage: 1200 MG, QD
     Route: 042
     Dates: start: 20170810
  45. ALLOPURINOL. [Suspect]
     Active Substance: ALLOPURINOL
     Indication: HYPERURICAEMIA
     Dosage: DOSAGE FORM: UNSPECIFIED, ON ALLOPURINOL FOR 6 YEARS
     Dates: start: 20110101
  46. NEOTIGASON [Suspect]
     Active Substance: ACITRETIN
     Indication: ERYTHRODERMIC PSORIASIS
     Dosage: 25 MG, QD
     Dates: start: 20170728, end: 20170728
  47. NOLOTIL (METAMIZOLE MAGNESIUM) [Suspect]
     Active Substance: METAMIZOLE MAGNESIUM
     Dosage: UNK, 1X/DAY (DOSAGE FORM: UNSPECIFIED)
     Route: 042
     Dates: start: 20170801
  48. METAMIZOLE SODIUM [Suspect]
     Active Substance: METAMIZOLE SODIUM
     Dosage: 1 DF, 1X/DAY
     Route: 042
     Dates: start: 20170801
  49. OMNIC OCAS [Concomitant]
     Active Substance: TAMSULOSIN HYDROCHLORIDE
     Dosage: 1 DF, 1X/DAY (24 HOURS)
  50. OMNIC OCAS [Concomitant]
     Active Substance: TAMSULOSIN HYDROCHLORIDE
     Dosage: 1 DF, QD
     Route: 065
  51. BETAMETHASONE W/CALCIPOTRIOL [Concomitant]
     Active Substance: BETAMETHASONE DIPROPIONATE\CALCIPOTRIENE HYDRATE
     Dosage: 1 DF, 2X/DAY (DOSAGE FORM: FOAM, 1 DOSE. ENSTILAR CUTANEOUS FOAM EACH 12H
     Dates: start: 20170401
  52. BRETARIS GENUAIR [Concomitant]
     Active Substance: ACLIDINIUM BROMIDE
     Dosage: UNK
     Route: 055
  53. DIPROGENTA [Concomitant]
     Active Substance: BETAMETHASONE DIPROPIONATE\GENTAMICIN SULFATE
     Dosage: FREQ:12 H;UNK UNK,Q12H
     Route: 061
  54. DACORTIN [Concomitant]
     Active Substance: PREDNISONE
     Dosage: 5 MG,QD
     Dates: start: 20170801, end: 20170801
  55. ENALAPRIL [Concomitant]
     Active Substance: ENALAPRIL
     Dosage: 5 MG, 1X/DAY
  56. ACITRETIN. [Concomitant]
     Active Substance: ACITRETIN
     Dosage: 25 MG,QD
     Dates: start: 20170728
  57. ENALAPRIL AGEN [Concomitant]
     Dosage: 5 MG, QD
  58. ACICLOVIR [Suspect]
     Active Substance: ACYCLOVIR
     Indication: ERYTHRODERMIC PSORIASIS
     Dosage: FREQ:8 H;400 MG, Q8H
     Route: 042
     Dates: start: 20170810
  59. ACICLOVIR [Suspect]
     Active Substance: ACYCLOVIR
     Dosage: 45 MG, 1X/DAY
     Route: 058
     Dates: start: 20170810
  60. CEFTRIAXONE. [Suspect]
     Active Substance: CEFTRIAXONE
     Dosage: 500 MG, QD
     Route: 030
     Dates: start: 20170801, end: 20170812
  61. SIMVASTATIN. [Concomitant]
     Active Substance: SIMVASTATIN
     Dosage: 20 MG,QD
     Route: 065
  62. BRETARIS GENUAIR [Concomitant]
     Active Substance: ACLIDINIUM BROMIDE
     Dosage: UNK
     Route: 055
  63. AUXINA A+E [Concomitant]
     Active Substance: RETINOL\TOCOPHEROL
     Dosage: 1 DF,UNK
     Route: 048
     Dates: start: 201704, end: 20170726
  64. DIPROGENTA [Concomitant]
     Active Substance: BETAMETHASONE DIPROPIONATE\GENTAMICIN SULFATE
     Dosage: 1 DF, 2X/DAY
     Route: 061
  65. DIPROGENTA [Concomitant]
     Active Substance: BETAMETHASONE DIPROPIONATE\GENTAMICIN SULFATE
     Dosage: 1 DF, 1X/DAY
     Route: 061
  66. DIPROGENTA [Concomitant]
     Active Substance: BETAMETHASONE DIPROPIONATE\GENTAMICIN SULFATE
     Dosage: 2 DF, 2X/DAY (Q12H)
     Route: 061
  67. DACORTIN [Concomitant]
     Active Substance: PREDNISONE
     Dosage: 5 MG,QD
  68. CALCIPOTRIOL/BETAMETHASONE SANDOZ [Concomitant]
     Indication: PRODUCT USED FOR UNKNOWN INDICATION
     Dosage: 2 DF, 2X/DAY (12 HOURS)
  69. FLUCONAZOLE. [Suspect]
     Active Substance: FLUCONAZOLE
     Dosage: 200 MG,QD
     Route: 042
     Dates: start: 20170810
  70. NEOTIGASON [Suspect]
     Active Substance: ACITRETIN
     Dosage: 50 MG, QD
     Dates: start: 20170728, end: 20170728
  71. STELARA [Suspect]
     Active Substance: USTEKINUMAB
     Indication: PSORIASIS
     Dosage: 45 MG, QD
     Route: 058
     Dates: start: 20170803, end: 20170803
  72. LISALGIL [Suspect]
     Active Substance: METAMIZOLE SODIUM
     Dosage: FREQ:8 H;3.0 DOSAGE FORM (1 DOSAGE FORM),1 IN 8HOUR
     Route: 042
     Dates: start: 20170801
  73. NOLOTIL (METAMIZOLE MAGNESIUM) [Suspect]
     Active Substance: METAMIZOLE MAGNESIUM
     Dosage: UNK, 1X/DAY
     Route: 042
     Dates: start: 20170801
  74. BRETARIS GENUAIR [Concomitant]
     Active Substance: ACLIDINIUM BROMIDE
     Dosage: UNK
  75. BILAXTEN [Concomitant]
     Active Substance: BILASTINE
     Dosage: 20 MG,QD
     Route: 048
     Dates: start: 20170726, end: 20170726
  76. SEGURIL [Concomitant]
     Active Substance: FUROSEMIDE
     Dosage: 60 MG,QD
     Dates: start: 20170802, end: 20170802
  77. ENALAPRIL [Concomitant]
     Active Substance: ENALAPRIL
     Dosage: 5 MG,QD
  78. ENALAPRIL [Concomitant]
     Active Substance: ENALAPRIL
     Dosage: 5 MG,QD
  79. SALMETEROL [Concomitant]
     Active Substance: SALMETEROL
     Dosage: FREQ:12 H;UNK UNK,Q12H
     Route: 055

REACTIONS (5)
  - Toxic epidermal necrolysis [Recovered/Resolved]
  - Off label use [Unknown]
  - Product use issue [Unknown]
  - Fungal infection [Recovering/Resolving]
  - Oral candidiasis [Recovering/Resolving]

NARRATIVE: CASE EVENT DATE: 2017
